FAERS Safety Report 6092610-3 (Version None)
Quarter: 2009Q1

REPORT INFORMATION
  Report Type: 
  Country: None (occurrence: None)
  Receive Date: 20090225
  Receipt Date: 20090224
  Transmission Date: 20090719
  Serious: Yes (Life-Threatening, Hospitalization)
  Sender: FDA-Public Use
  Company Number: FR-WYE-G03183009

PATIENT
  Age: 16 Year
  Sex: Male

DRUGS (6)
  1. RHINADVIL [Suspect]
     Dosage: OVERDOSE AMOUNT : 10 TABLETS IN ONE SINGLE DOSE
     Dates: start: 20090201, end: 20090201
  2. STRESAM [Suspect]
     Dosage: OVERDOSE AMOUNT : 20 DOSE-FORM IN ONE SINGLE DOSE
     Route: 048
     Dates: start: 20090201, end: 20090201
  3. DAFALGAN [Suspect]
     Dosage: OVERDOSE AMOUNT : 8 G IN ONE SINGLE DOSE
     Route: 048
     Dates: start: 20090201, end: 20090201
  4. SPIFEN [Suspect]
     Dosage: OVERDOSE AMOUNT : 8 DOSE-FORM IN ONE SINGLE DOSE
     Route: 048
     Dates: start: 20090201, end: 20090201
  5. DOMPERIDONE [Suspect]
     Dosage: OVERDOSE AMOUNT : 10 DOSE-FORM IN ONE SINGLE DOSE
     Route: 048
     Dates: start: 20090201, end: 20090201
  6. AUGMENTIN [Suspect]
     Dosage: OVERDOSE AMOUNT : 12 G IN ONE SINGLE DOSE
     Route: 048
     Dates: start: 20090201, end: 20090201

REACTIONS (3)
  - EPILEPSY [None]
  - MULTIPLE DRUG OVERDOSE INTENTIONAL [None]
  - SUICIDE ATTEMPT [None]
